FAERS Safety Report 11057622 (Version 2)
Quarter: 2015Q2

REPORT INFORMATION
  Report Type: Spontaneous
  Country: US (occurrence: US)
  Receive Date: 20150422
  Receipt Date: 20150528
  Transmission Date: 20150821
  Serious: Yes (Death)
  Sender: FDA-Public Use
  Company Number: US-ROCHE-1567609

PATIENT
  Age: 57 Year
  Sex: Female
  Weight: 35.5 kg

DRUGS (14)
  1. AZELASTINE HCL [Concomitant]
     Active Substance: AZELASTINE HYDROCHLORIDE
     Dosage: USE ONE SPRAY IN EACH NOSTRIL TWICE DAILY
     Route: 065
     Dates: start: 20141215
  2. LOVENOX 40 [Concomitant]
     Dosage: 40MG/0.4 SUBCUTANEOUS SOLUTION.?INJECT ONE SYRINGE SQ EVERY 12 AS DIRECTED.
     Route: 058
     Dates: start: 20140917
  3. DIAZEPAM. [Concomitant]
     Active Substance: DIAZEPAM
     Route: 048
     Dates: start: 20141124
  4. FOLIC ACID. [Concomitant]
     Active Substance: FOLIC ACID
     Route: 048
     Dates: start: 20141006
  5. GABAPENTIN. [Concomitant]
     Active Substance: GABAPENTIN
     Route: 048
     Dates: start: 20141013
  6. LANTUS [Concomitant]
     Active Substance: INSULIN GLARGINE
     Route: 058
     Dates: end: 20141124
  7. DILANTIN [Concomitant]
     Active Substance: PHENYTOIN
     Dosage: 2 CAPS ALTERNATING WITH 3 CAPS EVERYOTHER DAY
     Route: 065
     Dates: start: 20140917
  8. PERCOCET [Concomitant]
     Active Substance: ACETAMINOPHEN\OXYCODONE HYDROCHLORIDE
     Dosage: TAKE 1 OR 2 TABLETS EVERY 6 HOURS AS NEEDED FOR PAIN
     Route: 048
     Dates: start: 20140918
  9. DEXAMETHASON [Concomitant]
     Active Substance: DEXAMETHASONE
     Dosage: TAKE ONE TAB TWICE DAILY THE DAY BEFORE CHEMOTHERAPY AND THE DAY AFTER CHEMOTHERAPY.
     Route: 048
     Dates: start: 20141006
  10. PROZAC [Concomitant]
     Active Substance: FLUOXETINE HYDROCHLORIDE
     Route: 048
     Dates: start: 20140917
  11. PRILOSEC [Concomitant]
     Active Substance: OMEPRAZOLE MAGNESIUM
     Route: 065
     Dates: start: 20140917
  12. AVASTIN [Suspect]
     Active Substance: BEVACIZUMAB
     Indication: LUNG NEOPLASM MALIGNANT
     Dosage: ON DAY 1
     Route: 042
     Dates: start: 20131119
  13. COMPAZINE [Concomitant]
     Active Substance: PROCHLORPERAZINE MALEATE
     Indication: NAUSEA
     Route: 065
     Dates: start: 20141013
  14. METFORMIN HYDROCHLORIDE. [Concomitant]
     Active Substance: METFORMIN HYDROCHLORIDE
     Indication: DIABETES MELLITUS
     Route: 048
     Dates: start: 20140917

REACTIONS (1)
  - Acute respiratory failure [Fatal]

NARRATIVE: CASE EVENT DATE: 20150409
